FAERS Safety Report 6215288-4 (Version None)
Quarter: 2009Q2

REPORT INFORMATION
  Report Type: 
  Country: None (occurrence: None)
  Receive Date: 20090604
  Receipt Date: 20090526
  Transmission Date: 20091009
  Serious: Yes (Other)
  Sender: FDA-Public Use
  Company Number: US-BAYER-200921947GPV

PATIENT
  Age: 58 Year
  Sex: Male

DRUGS (2)
  1. ASPIRIN [Suspect]
     Indication: ANTIPLATELET THERAPY
     Route: 065
  2. CLOPIDOGREL [Suspect]
     Indication: ANTIPLATELET THERAPY
     Route: 065

REACTIONS (3)
  - GASTRIC ULCER [None]
  - GASTRITIS [None]
  - ULCER HAEMORRHAGE [None]
